FAERS Safety Report 13650454 (Version 1)
Quarter: 2017Q2

REPORT INFORMATION
  Report Type: Spontaneous
  Country: US (occurrence: US)
  Receive Date: 20170614
  Receipt Date: 20170614
  Transmission Date: 20170830
  Serious: Yes (Life-Threatening)
  Sender: FDA-Public Use
  Company Number: None

PATIENT

DRUGS (2)
  1. NEOSPORIN PLUS PAIN RELIEF FIRST AID ANTIBIOTIC/PAIN RELIEVING [Suspect]
     Active Substance: NEOMYCIN\POLYMYXIN B\PRAMOXINE HYDROCHLORIDE
     Indication: SCAB
     Dosage: ON THE SKIN
     Dates: start: 20170527, end: 20170527
  2. NEOSPORIN PLUS PAIN RELIEF FIRST AID ANTIBIOTIC/PAIN RELIEVING [Suspect]
     Active Substance: NEOMYCIN\POLYMYXIN B\PRAMOXINE HYDROCHLORIDE
     Indication: INFECTION PROPHYLAXIS
     Dosage: ON THE SKIN
     Dates: start: 20170527, end: 20170527

REACTIONS (2)
  - Cellulitis [None]
  - Hypersensitivity [None]

NARRATIVE: CASE EVENT DATE: 20170527
